FAERS Safety Report 24530475 (Version 1)
Quarter: 2024Q4

REPORT INFORMATION
  Report Type: Spontaneous
  Country: DE (occurrence: DE)
  Receive Date: 20241021
  Receipt Date: 20241021
  Transmission Date: 20250115
  Serious: Yes (Death)
  Sender: MYLAN
  Company Number: DE-MYLANLABS-2024M1094970

PATIENT
  Age: 23 Year
  Sex: Male

DRUGS (31)
  1. DOCETAXEL [Suspect]
     Active Substance: DOCETAXEL
     Indication: Osteosarcoma metastatic
     Dosage: UNK
     Route: 065
  2. DOCETAXEL [Suspect]
     Active Substance: DOCETAXEL
     Indication: Metastases to lung
  3. DOCETAXEL [Suspect]
     Active Substance: DOCETAXEL
     Indication: Metastases to bone
  4. GEMCITABINE [Suspect]
     Active Substance: GEMCITABINE
     Indication: Osteosarcoma metastatic
     Dosage: UNK
     Route: 065
  5. GEMCITABINE [Suspect]
     Active Substance: GEMCITABINE
     Indication: Metastases to lung
  6. GEMCITABINE [Suspect]
     Active Substance: GEMCITABINE
     Indication: Metastases to bone
  7. CABOZANTINIB [Suspect]
     Active Substance: CABOZANTINIB
     Indication: Osteosarcoma metastatic
     Dosage: UNK
     Route: 065
  8. CABOZANTINIB [Suspect]
     Active Substance: CABOZANTINIB
     Indication: Metastases to lung
  9. CABOZANTINIB [Suspect]
     Active Substance: CABOZANTINIB
     Indication: Metastases to bone
  10. OLAPARIB [Suspect]
     Active Substance: OLAPARIB
     Indication: Osteosarcoma metastatic
     Dosage: UNK
     Route: 065
  11. OLAPARIB [Suspect]
     Active Substance: OLAPARIB
     Indication: Metastases to lung
  12. OLAPARIB [Suspect]
     Active Substance: OLAPARIB
     Indication: Metastases to bone
  13. TRABECTEDIN [Suspect]
     Active Substance: TRABECTEDIN
     Indication: Osteosarcoma metastatic
     Dosage: UNK
     Route: 065
  14. TRABECTEDIN [Suspect]
     Active Substance: TRABECTEDIN
     Indication: Metastases to lung
  15. TRABECTEDIN [Suspect]
     Active Substance: TRABECTEDIN
     Indication: Metastases to bone
  16. ALPELISIB [Suspect]
     Active Substance: ALPELISIB
     Indication: PIK3CA-activated mutation
     Dosage: UNK
     Route: 065
  17. ALPELISIB [Suspect]
     Active Substance: ALPELISIB
     Indication: Osteosarcoma metastatic
  18. ALPELISIB [Suspect]
     Active Substance: ALPELISIB
     Indication: Metastases to lung
  19. ALPELISIB [Suspect]
     Active Substance: ALPELISIB
     Indication: Metastases to bone
  20. IFOSFAMIDE [Concomitant]
     Active Substance: IFOSFAMIDE
     Indication: Osteosarcoma metastatic
     Dosage: UNK
     Route: 065
  21. IFOSFAMIDE [Concomitant]
     Active Substance: IFOSFAMIDE
     Indication: PIK3CA-activated mutation
  22. IFOSFAMIDE [Concomitant]
     Active Substance: IFOSFAMIDE
     Indication: Metastases to lung
  23. IFOSFAMIDE [Concomitant]
     Active Substance: IFOSFAMIDE
     Indication: Metastases to bone
  24. ETOPOSIDE [Concomitant]
     Active Substance: ETOPOSIDE
     Indication: Osteosarcoma metastatic
     Dosage: UNK
     Route: 065
  25. ETOPOSIDE [Concomitant]
     Active Substance: ETOPOSIDE
     Indication: PIK3CA-activated mutation
  26. ETOPOSIDE [Concomitant]
     Active Substance: ETOPOSIDE
     Indication: Metastases to lung
  27. ETOPOSIDE [Concomitant]
     Active Substance: ETOPOSIDE
     Indication: Metastases to bone
  28. CARBOPLATIN [Concomitant]
     Active Substance: CARBOPLATIN
     Indication: Osteosarcoma metastatic
     Dosage: UNK
     Route: 065
  29. CARBOPLATIN [Concomitant]
     Active Substance: CARBOPLATIN
     Indication: PIK3CA-activated mutation
  30. CARBOPLATIN [Concomitant]
     Active Substance: CARBOPLATIN
     Indication: Metastases to lung
  31. CARBOPLATIN [Concomitant]
     Active Substance: CARBOPLATIN
     Indication: Metastases to bone

REACTIONS (1)
  - Drug ineffective [Fatal]
